FAERS Safety Report 16541822 (Version 3)
Quarter: 2019Q3

REPORT INFORMATION
  Report Type: Spontaneous
  Country: SI (occurrence: SI)
  Receive Date: 20190708
  Receipt Date: 20190801
  Transmission Date: 20191004
  Serious: Yes (Hospitalization)
  Sender: FDA-Public Use
  Company Number: PHHY2019SI156389

PATIENT
  Age: 69 Year
  Sex: Male

DRUGS (10)
  1. PANTOPRAZOLE [Concomitant]
     Active Substance: PANTOPRAZOLE
     Dosage: 1 DF, QD
     Route: 065
  2. CARBIDOPA + L-DOPA [Suspect]
     Active Substance: CARBIDOPA\LEVODOPA
     Indication: PARKINSON^S DISEASE
     Dosage: 70 ML, QD (9 ML MORNING, 3.5 ML/HR FOR 16 HOURS IN DAY, PRN 2.5 ML, BID, TOTAL OF 1440 MG)
     Route: 041
  3. CARBIDOPA + L-DOPA [Suspect]
     Active Substance: CARBIDOPA\LEVODOPA
     Dosage: UNK
     Route: 050
  4. FLUDROCORTISONE [Concomitant]
     Active Substance: FLUDROCORTISONE
     Indication: PRODUCT USED FOR UNKNOWN INDICATION
     Dosage: 0.1 MG, QD
     Route: 065
  5. STALEVO [Suspect]
     Active Substance: CARBIDOPA\ENTACAPONE\LEVODOPA
     Indication: PARKINSON^S DISEASE
     Dosage: 1 DF, QHS
     Route: 048
  6. PANTOPRAZOLE [Concomitant]
     Active Substance: PANTOPRAZOLE
     Indication: PRODUCT USED FOR UNKNOWN INDICATION
     Dosage: 20 MG, QD
     Route: 065
  7. MADOPAR [Suspect]
     Active Substance: BENSERAZIDE HYDROCHLORIDE\LEVODOPA
     Dosage: 25 MG BENSERAZIDE HYDROCHLORIDE 100 MG LEVODOPA
     Route: 048
  8. CARBIDOPA + L-DOPA [Suspect]
     Active Substance: CARBIDOPA\LEVODOPA
     Dosage: 1280 MG, QD (9 ML MORNING, 3.2 ML/HR FOR DAY, 2.0 ML BOLUS PRN
     Route: 041
  9. MADOPAR [Suspect]
     Active Substance: BENSERAZIDE HYDROCHLORIDE\LEVODOPA
     Indication: PARKINSON^S DISEASE
     Dosage: 1 DF, PRN
     Route: 065
  10. QUETIAPINE. [Concomitant]
     Active Substance: QUETIAPINE
     Indication: PRODUCT USED FOR UNKNOWN INDICATION
     Dosage: 1 DF, QHS
     Route: 065

REACTIONS (5)
  - Oromandibular dystonia [Recovering/Resolving]
  - Protrusion tongue [Recovering/Resolving]
  - Dyskinesia [Recovering/Resolving]
  - Dysphagia [Recovering/Resolving]
  - Weight decreased [Unknown]
